FAERS Safety Report 13297982 (Version 2)
Quarter: 2017Q3

REPORT INFORMATION
  Report Type: Spontaneous
  Country: JP (occurrence: JP)
  Receive Date: 20170306
  Receipt Date: 20170712
  Transmission Date: 20171127
  Serious: Yes (Other)
  Sender: FDA-Public Use
  Company Number: JP-ELI_LILLY_AND_COMPANY-JP201703001253

PATIENT
  Age: 79 Year
  Sex: Male

DRUGS (3)
  1. ERBITUX [Suspect]
     Active Substance: CETUXIMAB
     Indication: LIP AND/OR ORAL CAVITY CANCER
     Dosage: 682 MG, UNKNOWN
     Route: 042
     Dates: start: 20161121
  2. WARFARIN [Suspect]
     Active Substance: WARFARIN
     Indication: ATRIAL FIBRILLATION
     Dosage: UNK UNK, UNKNOWN
     Route: 048
  3. ERBITUX [Suspect]
     Active Substance: CETUXIMAB
     Dosage: 426 MG, UNKNOWN
     Route: 042
     Dates: start: 20170106

REACTIONS (3)
  - Haemothorax [Recovering/Resolving]
  - Anaemia [Unknown]
  - International normalised ratio increased [Recovered/Resolved with Sequelae]

NARRATIVE: CASE EVENT DATE: 201701
